FAERS Safety Report 5615923-5 (Version None)
Quarter: 2008Q1

REPORT INFORMATION
  Report Type: 
  Country: None (occurrence: None)
  Receive Date: 20080206
  Receipt Date: 20080128
  Transmission Date: 20080703
  Serious: Yes (Life-Threatening, Hospitalization, Other)
  Sender: FDA-Public Use
  Company Number: US-PFIZER INC-2007107822

PATIENT
  Sex: Male
  Weight: 85.3 kg

DRUGS (15)
  1. EXUBERA [Suspect]
     Dosage: TEXT:3 MG
     Route: 055
  2. PROPRANOLOL [Concomitant]
  3. ENULOSE [Concomitant]
  4. LEXAPRO [Concomitant]
  5. NEOMYCIN [Concomitant]
  6. SPIRONOLACTONE [Concomitant]
  7. FUROSEMIDE [Concomitant]
  8. VITAMIN D [Concomitant]
  9. MORPHINE SULFATE [Concomitant]
  10. HYDROMORPHONE HCL [Concomitant]
  11. TRIAZOLAM [Concomitant]
  12. GLIPIZIDE [Concomitant]
  13. NEXIUM [Concomitant]
  14. METFORMIN HCL [Concomitant]
  15. WELCHOL [Concomitant]

REACTIONS (3)
  - BLOOD GLUCOSE DECREASED [None]
  - LOSS OF CONSCIOUSNESS [None]
  - UNRESPONSIVE TO STIMULI [None]
